FAERS Safety Report 8863298 (Version 1)
Quarter: 2012Q4

REPORT INFORMATION
  Report Type: 
  Country: PK (occurrence: PK)
  Receive Date: 20121025
  Receipt Date: 20121025
  Transmission Date: 20130627
  Serious: Yes (Death)
  Sender: FDA-Public Use
  Company Number: PHHY2012PK094932

PATIENT

DRUGS (11)
  1. CICLOSPORIN [Suspect]
     Indication: GRAFT VERSUS HOST DISEASE
     Dosage: 5 mg/kg (2 divided doses daily from day 2)
     Route: 042
  2. CICLOSPORIN [Suspect]
     Dosage: 3 mg/kg (from day 5 of posttransplant)
     Route: 042
  3. PREDNISOLONE [Concomitant]
     Indication: GRAFT VERSUS HOST DISEASE
  4. CIPROFLOXACIN [Concomitant]
  5. FLUCONAZOLE [Concomitant]
  6. ACYCLOVIR [Concomitant]
  7. PENTAMIDINE [Concomitant]
     Indication: PNEUMOCYSTIS JIROVECI PNEUMONIA
  8. CO-TRIMOXAZOLE [Concomitant]
  9. PIPERACILLIN [Concomitant]
     Route: 042
  10. TAZOBACTAM [Concomitant]
     Route: 042
  11. AMIKACIN [Concomitant]
     Route: 042

REACTIONS (1)
  - Central nervous system lesion [Fatal]
